FAERS Safety Report 8477894-6 (Version None)
Quarter: 2012Q2

REPORT INFORMATION
  Report Type: 
  Country: None (occurrence: None)
  Receive Date: 20120629
  Receipt Date: 20120621
  Transmission Date: 20120825
  Serious: Yes (Hospitalization)
  Sender: FDA-Public Use
  Company Number: US-BAYER-2012-043180

PATIENT
  Age: 27 Year
  Sex: Female
  Weight: 51.701 kg

DRUGS (4)
  1. AZITHROMYCIN [Concomitant]
  2. PROMETHAZINE HYDROCHLORIDE [Concomitant]
  3. CYMBALTA [Concomitant]
  4. YAZ [Suspect]
     Dosage: UNK
     Dates: start: 20071101, end: 20080101

REACTIONS (5)
  - INJURY [None]
  - GALLBLADDER DISORDER [None]
  - CHOLECYSTITIS CHRONIC [None]
  - EMOTIONAL DISTRESS [None]
  - PAIN [None]
